FAERS Safety Report 4922901-8 (Version None)
Quarter: 2006Q1

REPORT INFORMATION
  Report Type: 
  Country: None (occurrence: None)
  Receive Date: 20060221
  Receipt Date: 20060207
  Transmission Date: 20060701
  Serious: No
  Sender: FDA-Public Use
  Company Number: 02100-USA-06-0005

PATIENT

DRUGS (1)
  1. PLETAL [Suspect]
     Dosage: DF ORAL
     Route: 048
     Dates: start: 19990101, end: 19991101

REACTIONS (1)
  - TORSADE DE POINTES [None]
